FAERS Safety Report 8937629 (Version 1)
Quarter: 2012Q4

REPORT INFORMATION
  Report Type: Spontaneous
  Country: GB (occurrence: None)
  Receive Date: 20121121
  Receipt Date: 20121121
  Transmission Date: 20130627
  Serious: Yes (Hospitalization)
  Sender: FDA-Public Use
  Company Number: ABR_00694_2012

PATIENT
  Age: 15 Month

DRUGS (2)
  1. ERYTHROMYCIN [Suspect]
     Indication: PYREXIA
  2. ERYTHROMYCIN [Suspect]
     Indication: BLISTER

REACTIONS (8)
  - Toxic epidermal necrolysis [None]
  - Diarrhoea [None]
  - Vomiting [None]
  - Multi-organ failure [None]
  - Fluid imbalance [None]
  - Lagophthalmos [None]
  - Madarosis [None]
  - Trichiasis [None]
